FAERS Safety Report 4933672-3 (Version None)
Quarter: 2006Q1

REPORT INFORMATION
  Report Type: 
  Country: None (occurrence: None)
  Receive Date: 20060306
  Receipt Date: 20060228
  Transmission Date: 20060701
  Serious: Yes (Other)
  Sender: FDA-Public Use
  Company Number: AU-GLAXOSMITHKLINE-B0413856A

PATIENT
  Age: 48 Year
  Sex: Female

DRUGS (1)
  1. NICABATE CQ 4MG LOZENGE [Suspect]
     Indication: SMOKING CESSATION THERAPY
     Route: 002
     Dates: start: 20030101

REACTIONS (2)
  - INTENTIONAL DRUG MISUSE [None]
  - THYROID GLAND CANCER [None]
